FAERS Safety Report 7219288-7 (Version None)
Quarter: 2011Q1

REPORT INFORMATION
  Report Type: 
  Country: None (occurrence: None)
  Receive Date: 20110111
  Receipt Date: 20101231
  Transmission Date: 20110831
  Serious: No
  Sender: FDA-Public Use
  Company Number: US-PFIZER INC-2011000002

PATIENT
  Sex: Female
  Weight: 65.8 kg

DRUGS (2)
  1. LYRICA [Suspect]
     Indication: PAIN
     Dosage: 150 MG, 1X/DAY
     Route: 048
     Dates: start: 20100901, end: 20100101
  2. LYRICA [Suspect]
     Indication: FIBROMYALGIA
     Dosage: 300 MG, UNK
     Route: 048
     Dates: start: 20100101, end: 20101201

REACTIONS (8)
  - MUSCLE SPASMS [None]
  - FEELING ABNORMAL [None]
  - WITHDRAWAL SYNDROME [None]
  - VISION BLURRED [None]
  - FEELING HOT [None]
  - FEELING COLD [None]
  - DRUG INEFFECTIVE [None]
  - TREMOR [None]
